FAERS Safety Report 9430441 (Version 3)
Quarter: 2013Q4

REPORT INFORMATION
  Report Type: Spontaneous
  Country: FR (occurrence: FR)
  Receive Date: 20130730
  Receipt Date: 20131001
  Transmission Date: 20140711
  Serious: Yes (Life-Threatening, Hospitalization)
  Sender: FDA-Public Use
  Company Number: FR-GLAXOSMITHKLINE-B0910735A

PATIENT
  Age: 74 Year
  Sex: Male

DRUGS (18)
  1. ZELITREX [Suspect]
     Indication: PROPHYLAXIS
     Dosage: 500MG TWICE PER DAY
     Route: 048
     Dates: start: 20130426
  2. ZYLORIC [Suspect]
     Indication: HYPERURICAEMIA
     Dosage: 300MG TWICE PER DAY
     Route: 048
     Dates: start: 20130426, end: 20130524
  3. BACTRIM FORTE [Suspect]
     Indication: PROPHYLAXIS
     Dosage: 1TAB THREE TIMES PER WEEK
     Route: 048
     Dates: start: 20130426, end: 20130610
  4. LEDERFOLINE [Suspect]
     Indication: PROPHYLAXIS
     Dosage: 1TAB WEEKLY
     Route: 048
     Dates: start: 20130426, end: 20130621
  5. MABTHERA [Suspect]
     Indication: CHRONIC LYMPHOCYTIC LEUKAEMIA
     Dates: start: 20130424, end: 20130524
  6. ENDOXAN [Suspect]
     Indication: CHRONIC LYMPHOCYTIC LEUKAEMIA
     Dosage: 450MG CYCLIC
     Route: 048
     Dates: start: 20130425, end: 20130526
  7. FLUDARABINE [Suspect]
     Indication: CHRONIC LYMPHOCYTIC LEUKAEMIA
     Dosage: 70MG PER DAY
     Route: 048
     Dates: start: 20130426, end: 20130526
  8. POLARAMINE [Suspect]
     Indication: PRODUCT USED FOR UNKNOWN INDICATION
     Route: 042
     Dates: start: 20130524, end: 20130524
  9. PERFALGAN [Suspect]
     Indication: PRODUCT USED FOR UNKNOWN INDICATION
     Dosage: 500MG PER DAY
     Dates: start: 20130524, end: 20130524
  10. SOLUMEDROL [Suspect]
     Indication: PRODUCT USED FOR UNKNOWN INDICATION
     Dosage: 80MG PER DAY
     Dates: start: 20130524, end: 20130524
  11. GRANULOCYTE COLONY-STIMULATING FACTOR NOS [Suspect]
     Indication: PRODUCT USED FOR UNKNOWN INDICATION
     Dates: start: 201305, end: 201306
  12. SILODOSIN [Concomitant]
     Dosage: 8MG IN THE MORNING
     Route: 048
  13. ZANIDIP [Concomitant]
     Route: 048
  14. KARDEGIC [Concomitant]
     Dosage: 75MG PER DAY
     Route: 048
  15. CRESTOR [Concomitant]
     Dosage: 5MG PER DAY
     Route: 048
  16. TRAVOPROST [Concomitant]
     Dosage: 1DROP PER DAY
     Route: 047
  17. TRUSOPT [Concomitant]
     Dosage: 1DROP PER DAY
     Route: 047
  18. TIMOLOL MALEAT [Concomitant]
     Dosage: 1DROP PER DAY
     Route: 047

REACTIONS (3)
  - Drug reaction with eosinophilia and systemic symptoms [Recovered/Resolved]
  - Rash generalised [Recovered/Resolved]
  - Face oedema [Recovered/Resolved]
